FAERS Safety Report 17930683 (Version 14)
Quarter: 2022Q1

REPORT INFORMATION
  Report Type: Spontaneous
  Country: US (occurrence: US)
  Receive Date: 20200623
  Receipt Date: 20220311
  Transmission Date: 20220423
  Serious: No
  Sender: FDA-Public Use
  Company Number: US-PFIZER INC-2020240072

PATIENT
  Age: 73 Year
  Sex: Female
  Weight: 93.44 kg

DRUGS (2)
  1. GENOTROPIN [Suspect]
     Active Substance: SOMATROPIN
     Indication: Blood growth hormone decreased
     Dosage: 0.6 MG, DAILY (0.6MG INJECTION; EVERY NIGHT)
     Dates: start: 202006
  2. GENOTROPIN [Suspect]
     Active Substance: SOMATROPIN
     Indication: Hypothalamo-pituitary disorder

REACTIONS (7)
  - Reaction to preservatives [Unknown]
  - Reaction to excipient [Unknown]
  - Wrong technique in device usage process [Unknown]
  - Drug dose omission by device [Unknown]
  - Device difficult to use [Unknown]
  - Device issue [Unknown]
  - Device leakage [Unknown]
